FAERS Safety Report 7617287-4 (Version None)
Quarter: 2011Q3

REPORT INFORMATION
  Report Type: 
  Country: None (occurrence: None)
  Receive Date: 20110718
  Receipt Date: 20110704
  Transmission Date: 20111222
  Serious: Yes (Other)
  Sender: FDA-Public Use
  Company Number: GB-RANBAXY-2011R1-45945

PATIENT
  Age: 29 Year
  Sex: Female

DRUGS (1)
  1. RISPERIDONE [Suspect]
     Indication: EPILEPSY
     Dosage: 2 MG, UNK
     Route: 048
     Dates: start: 20110601

REACTIONS (4)
  - DRUG INEFFECTIVE [None]
  - FATIGUE [None]
  - EPILEPSY [None]
  - LETHARGY [None]
